FAERS Safety Report 5875983-3 (Version None)
Quarter: 2008Q3

REPORT INFORMATION
  Report Type: 
  Country: None (occurrence: None)
  Receive Date: 20080905
  Receipt Date: 20080821
  Transmission Date: 20090109
  Serious: Yes (Hospitalization)
  Sender: FDA-Public Use
  Company Number: DSJ-2008-09706

PATIENT
  Age: 80 Year
  Sex: Female
  Weight: 50 kg

DRUGS (5)
  1. OLMESARTAN MEDOXOMIL [Suspect]
  2. AMLODIPINE [Concomitant]
  3. OVULANZE (OMEPRAZOLE) [Concomitant]
  4. MIY BM [Concomitant]
  5. ULCERLMIN            (SUCRALFATE) (SUCRALFATE) [Concomitant]

REACTIONS (3)
  - HYPOGLYCAEMIA [None]
  - SOMNOLENCE [None]
  - SYNCOPE [None]
